FAERS Safety Report 6935697-5 (Version None)
Quarter: 2010Q3

REPORT INFORMATION
  Report Type: 
  Country: None (occurrence: None)
  Receive Date: 20100823
  Receipt Date: 20100809
  Transmission Date: 20110219
  Serious: Yes (Other)
  Sender: FDA-Public Use
  Company Number: PHHY2010JP52767

PATIENT

DRUGS (2)
  1. AREDIA [Suspect]
     Indication: BREAST CANCER
     Route: 041
  2. ZOMETA [Suspect]
     Indication: BREAST CANCER
     Dosage: UNK
     Route: 041

REACTIONS (2)
  - BONE NEOPLASM [None]
  - FEMUR FRACTURE [None]
